FAERS Safety Report 10253042 (Version 1)
Quarter: 2014Q2

REPORT INFORMATION
  Report Type: Spontaneous
  Country: US (occurrence: US)
  Receive Date: 20140623
  Receipt Date: 20140623
  Transmission Date: 20141212
  Serious: No
  Sender: FDA-Public Use
  Company Number: US-009507513-1406USA008217

PATIENT
  Age: 78 Year
  Sex: Female

DRUGS (2)
  1. SINGULAIR [Suspect]
     Indication: HYPERSENSITIVITY
     Dosage: 10 MG, FREQUENCY-UNSPECIFIED
     Route: 048
     Dates: start: 2004
  2. THERAPY UNSPECIFIED [Suspect]

REACTIONS (1)
  - Somnambulism [Not Recovered/Not Resolved]
